FAERS Safety Report 8856017 (Version 1)
Quarter: 2012Q4

REPORT INFORMATION
  Report Type: 
  Country: US (occurrence: US)
  Receive Date: 20121023
  Receipt Date: 20121023
  Transmission Date: 20130627
  Serious: No
  Sender: FDA-Public Use
  Company Number: US-AMGEN-USASP2012058381

PATIENT
  Age: 50 Year
  Sex: Female

DRUGS (13)
  1. ENBREL [Suspect]
     Indication: PRODUCT USED FOR UNKNOWN INDICATION
     Dosage: 50 mg, qwk
     Route: 058
  2. FOLIC ACID [Concomitant]
     Dosage: UNK
  3. CALCIUM                            /00060701/ [Concomitant]
     Dosage: 600
  4. VITAMIN B-12 [Concomitant]
     Dosage: 1000 mcg
  5. PRENATAL                           /00231801/ [Concomitant]
     Dosage: UNK
  6. COQ10                              /00517201/ [Concomitant]
     Dosage: UNK
  7. PLAQUENIL                          /00072602/ [Concomitant]
     Dosage: 200 mg, UNK
  8. METHOTREXATE /00113802/ [Concomitant]
     Dosage: 2.5 mg, UNK
  9. DIOVAN A [Concomitant]
     Dosage: 160 mg, UNK
  10. HYDROCHLOROTH [Concomitant]
     Dosage: 12.5 mg, UNK
  11. SINGULAIR MINI [Concomitant]
     Dosage: 10 mg, UNK
  12. ALLEGRA 12 HOUR [Concomitant]
     Dosage: 30 mg, UNK
  13. POTASSIUM CHLORIDE [Concomitant]
     Dosage: 10 mEq, cr

REACTIONS (2)
  - Escherichia urinary tract infection [Unknown]
  - Bladder disorder [Unknown]
